FAERS Safety Report 18294406 (Version 1)
Quarter: 2020Q3

REPORT INFORMATION
  Report Type: Spontaneous
  Country: US (occurrence: US)
  Receive Date: 20200922
  Receipt Date: 20200922
  Transmission Date: 20201103
  Serious: Yes (Hospitalization)
  Sender: FDA-Public Use
  Company Number: None

PATIENT
  Age: 62 Year
  Sex: Male
  Weight: 100 kg

DRUGS (21)
  1. NYSTATIN 500000 UNIT QID [Concomitant]
  2. ONDANSETRON 8MG TID [Concomitant]
  3. PANTOPRAZOLE 40MG QD [Concomitant]
  4. SULFAMETHOXAZOLE?TRIMETHOPRIM 800?160MG 3XW [Concomitant]
  5. FLUCONAZOLE 200MG QD [Concomitant]
  6. HYDROCHLOROTHIAZIDE 25MG QD [Concomitant]
  7. BUSULFAN. [Suspect]
     Active Substance: BUSULFAN
     Indication: BONE MARROW TRANSPLANT
     Route: 041
     Dates: start: 20200826, end: 20200830
  8. NIFEDIPINE 30MG QD [Concomitant]
  9. PROCHLORPERAZINE 10MG QID [Concomitant]
  10. LISINOPRIL 20MG QD [Concomitant]
  11. CALCIUM?VITAMIN D 500?400MG QD [Concomitant]
  12. MELPHALAN. [Suspect]
     Active Substance: MELPHALAN
  13. OLANZAPINE 10MG QHS [Concomitant]
  14. TRAMADOL 50MG Q6H PRN [Concomitant]
  15. VITAMIN D 1.25MD Q2WEEKS [Concomitant]
  16. FOLIC ACID 1MG BID [Concomitant]
  17. MULTIPLE VITAMIN 1TAB QD [Concomitant]
  18. ACYCLOVIR 400MG PO BID [Concomitant]
  19. LEVOTHYROXINE 125MG QD [Concomitant]
  20. CARFILZOMIB [Suspect]
     Active Substance: CARFILZOMIB
     Indication: BONE MARROW TRANSPLANT
     Route: 041
     Dates: start: 20200831, end: 20200901
  21. LOPERAMIDE 2MG QID PRN [Concomitant]

REACTIONS (12)
  - Hypophagia [None]
  - Device intolerance [None]
  - Autologous haematopoietic stem cell transplant [None]
  - Diarrhoea [None]
  - Haematemesis [None]
  - Decreased appetite [None]
  - Acute kidney injury [None]
  - Therapy interrupted [None]
  - Vomiting [None]
  - Prerenal failure [None]
  - Respiratory distress [None]
  - Nausea [None]

NARRATIVE: CASE EVENT DATE: 20200922
